FAERS Safety Report 18511636 (Version 1)
Quarter: 2020Q4

REPORT INFORMATION
  Report Type: Report from Study
  Country: JP (occurrence: JP)
  Receive Date: 20201117
  Receipt Date: 20201117
  Transmission Date: 20210114
  Serious: Yes (Other)
  Sender: FDA-Public Use
  Company Number: JP-JNJFOC-20201024845

PATIENT
  Age: 68 Year
  Sex: Female

DRUGS (8)
  1. PAROXETINE MESYLATE [Concomitant]
     Active Substance: PAROXETINE MESYLATE
  2. LEVOTHYROXINE. [Concomitant]
     Active Substance: LEVOTHYROXINE
     Indication: THYROID DISORDER
  3. BOSENTAN. [Suspect]
     Active Substance: BOSENTAN
     Indication: PULMONARY ARTERIAL HYPERTENSION
     Route: 048
     Dates: start: 201907, end: 201909
  4. TRACLEER [Suspect]
     Active Substance: BOSENTAN
     Route: 048
     Dates: start: 201909
  5. TORSEMIDE. [Concomitant]
     Active Substance: TORSEMIDE
  6. PEPCID [Concomitant]
     Active Substance: FAMOTIDINE
     Indication: GASTROOESOPHAGEAL REFLUX DISEASE
  7. ATORVASTATIN [Concomitant]
     Active Substance: ATORVASTATIN
     Indication: BLOOD CHOLESTEROL ABNORMAL
  8. TRACLEER [Suspect]
     Active Substance: BOSENTAN
     Indication: PULMONARY ARTERIAL HYPERTENSION
     Route: 048
     Dates: start: 2013, end: 201908

REACTIONS (6)
  - Fatigue [Recovered/Resolved]
  - Feeling jittery [Recovered/Resolved]
  - Illness [Recovered/Resolved]
  - Kidney infection [Unknown]
  - Drug ineffective [Recovered/Resolved]
  - Nervousness [Recovered/Resolved]

NARRATIVE: CASE EVENT DATE: 2019
